FAERS Safety Report 9387230 (Version 1)
Quarter: 2013Q3

REPORT INFORMATION
  Report Type: Spontaneous
  Country: JP (occurrence: None)
  Receive Date: 20130702
  Receipt Date: 20130702
  Transmission Date: 20140515
  Serious: No
  Sender: FDA-Public Use
  Company Number: TCI2013A03713

PATIENT
  Sex: Male

DRUGS (1)
  1. LANSAP [Suspect]
     Indication: PRODUCT USED FOR UNKNOWN INDICATION

REACTIONS (6)
  - Depressed level of consciousness [None]
  - Blood pressure decreased [None]
  - Malaise [None]
  - Pruritus generalised [None]
  - Vomiting [None]
  - Abdominal pain upper [None]
